FAERS Safety Report 7002097-1 (Version None)
Quarter: 2010Q3

REPORT INFORMATION
  Report Type: 
  Country: None (occurrence: None)
  Receive Date: 20100920
  Receipt Date: 20070810
  Transmission Date: 20110219
  Serious: Yes (Other)
  Sender: FDA-Public Use
  Company Number: US-ASTRAZENECA-2006UW26700

PATIENT
  Age: 33 Year
  Sex: Male
  Weight: 161.1 kg

DRUGS (8)
  1. SEROQUEL [Suspect]
     Route: 048
     Dates: start: 20021028
  2. CLONIDINE [Concomitant]
     Indication: BLOOD PRESSURE
     Dosage: 0.2-0.6 MG
     Route: 048
     Dates: start: 20021020
  3. NORVASC [Concomitant]
     Indication: BLOOD PRESSURE
     Route: 048
     Dates: start: 20021020
  4. ATENOLOL [Concomitant]
     Indication: BLOOD PRESSURE
     Dosage: 25-200 MG
     Route: 048
     Dates: start: 20021020
  5. PROTONIX [Concomitant]
     Route: 048
     Dates: start: 20021020
  6. LORAZEPAM [Concomitant]
     Dosage: 0.5-2 MG
     Route: 048
     Dates: start: 20021020
  7. AMBIEN [Concomitant]
     Dosage: 5-10 MG
     Route: 048
     Dates: start: 20020211, end: 20020214
  8. ZOLPIDEM TART [Concomitant]
     Dosage: 5 MG DISPENSED
     Route: 048
     Dates: start: 20021020

REACTIONS (3)
  - DIABETES MELLITUS [None]
  - PANCREATITIS [None]
  - TYPE 2 DIABETES MELLITUS [None]
